FAERS Safety Report 5215547-8 (Version None)
Quarter: 2007Q1

REPORT INFORMATION
  Report Type: 
  Country: None (occurrence: None)
  Receive Date: 20070117
  Receipt Date: 20070103
  Transmission Date: 20070707
  Serious: Yes (Other)
  Sender: FDA-Public Use
  Company Number: 2006S1006343

PATIENT
  Age: 14 Year
  Sex: Male
  Weight: 40.3 kg

DRUGS (8)
  1. MERCAPTAMINE BITARTRATE (MERCAPTAMINE BITARTRATE) (150 MG) [Suspect]
     Indication: CYSTINOSIS
     Dosage: 1200 MG; QD; PO
     Route: 048
     Dates: start: 20060311
  2. CYSTEAMINE [Concomitant]
  3. ESOMEPRAZOLE MAGNESIUM [Concomitant]
  4. PHOSPHATE [Concomitant]
  5. ALFACALCIDOL [Concomitant]
  6. POTASSIUM CHLORIDE [Concomitant]
  7. CITRATE [Concomitant]
  8. CYSTEAMINE [Concomitant]

REACTIONS (4)
  - ARTHROPATHY [None]
  - HAEMOGLOBIN DECREASED [None]
  - SKIN DISCOLOURATION [None]
  - SKIN FRAGILITY [None]
